FAERS Safety Report 16193345 (Version 2)
Quarter: 2019Q2

REPORT INFORMATION
  Report Type: Spontaneous
  Country: CN (occurrence: CN)
  Receive Date: 20190413
  Receipt Date: 20190501
  Transmission Date: 20190711
  Serious: Yes (Hospitalization)
  Sender: FDA-Public Use
  Company Number: CN-UNITED THERAPEUTICS-UNT-2019-005741

PATIENT
  Age: 51 Year
  Sex: Female
  Weight: 50 kg

DRUGS (4)
  1. REMODULIN [Suspect]
     Active Substance: TREPROSTINIL
     Dosage: 0.005 ?G/KG, CONTINUING
     Route: 058
     Dates: start: 20190326, end: 20190328
  2. REMODULIN [Suspect]
     Active Substance: TREPROSTINIL
     Indication: PULMONARY ARTERIAL HYPERTENSION
     Dosage: 0.00125 ?G/KG, UNK
     Route: 058
     Dates: start: 20190320
  3. REMODULIN [Suspect]
     Active Substance: TREPROSTINIL
     Dosage: 0.0010 ?G/KG, CONTINUING
     Route: 058
     Dates: start: 20190401
  4. REMODULIN [Suspect]
     Active Substance: TREPROSTINIL
     Dosage: 0.00725 ?G/KG, CONTINUING
     Route: 058
     Dates: start: 20190328, end: 20190401

REACTIONS (3)
  - Flushing [Recovered/Resolved]
  - Dizziness [Recovered/Resolved]
  - Upper respiratory tract infection [Recovered/Resolved]

NARRATIVE: CASE EVENT DATE: 20190326
